FAERS Safety Report 10155307 (Version 1)
Quarter: 2014Q2

REPORT INFORMATION
  Report Type: Report from Study
  Country: US (occurrence: US)
  Receive Date: 20140506
  Receipt Date: 20140506
  Transmission Date: 20141212
  Serious: Yes (Other)
  Sender: FDA-Public Use
  Company Number: PHEH2014US008712

PATIENT
  Sex: Female
  Weight: 42.64 kg

DRUGS (6)
  1. TOBI PODHALER [Suspect]
     Indication: CYSTIC FIBROSIS
     Dosage: 112 MG, BID
     Route: 055
     Dates: end: 201312
  2. TOBI PODHALER [Suspect]
     Indication: ASTHMA
  3. ALBUTEROL [Concomitant]
     Dosage: UNK
  4. PULMOZYME [Concomitant]
     Dosage: UNK
  5. PRILOSEC [Concomitant]
     Dosage: UNK
  6. VITAMIN D [Concomitant]
     Dosage: UNK

REACTIONS (2)
  - Renal failure [Recovering/Resolving]
  - Cough [Recovering/Resolving]
